FAERS Safety Report 7576064-3 (Version None)
Quarter: 2011Q2

REPORT INFORMATION
  Report Type: 
  Country: None (occurrence: None)
  Receive Date: 20110628
  Receipt Date: 20110514
  Transmission Date: 20111010
  Serious: No
  Sender: FDA-Public Use
  Company Number: US-BAYER-2011-043874

PATIENT
  Sex: Female

DRUGS (2)
  1. EXCEDRIN (MIGRAINE) [Concomitant]
     Indication: HEADACHE
  2. ALEVE (CAPLET) [Suspect]
     Indication: HEADACHE

REACTIONS (1)
  - HEADACHE [None]
